FAERS Safety Report 10455402 (Version 1)
Quarter: 2014Q3

REPORT INFORMATION
  Report Type: Spontaneous
  Country: US (occurrence: None)
  Receive Date: 20140915
  Receipt Date: 20140915
  Transmission Date: 20150326
  Serious: Yes (Death)
  Sender: FDA-Public Use
  Company Number: None

PATIENT
  Sex: Male
  Weight: 76.9 kg

DRUGS (17)
  1. ACTIGALL [Concomitant]
     Active Substance: URSODIOL
  2. COLACE [Concomitant]
     Active Substance: DOCUSATE SODIUM
  3. PROGRAF [Concomitant]
     Active Substance: TACROLIMUS\TACROLIMUS ANHYDROUS
  4. XANAX [Concomitant]
     Active Substance: ALPRAZOLAM
  5. LASIX [Concomitant]
     Active Substance: FUROSEMIDE
  6. COMBIVENT [Concomitant]
     Active Substance: ALBUTEROL SULFATE\IPRATROPIUM BROMIDE
  7. ACTICAL [Concomitant]
  8. SIMEPRAVIR [Suspect]
     Active Substance: SIMEPREVIR
     Indication: HEPATITIS C
     Route: 048
     Dates: start: 20140613, end: 20140821
  9. SOFOSBUVIR [Suspect]
     Active Substance: SOFOSBUVIR
     Indication: HEPATITIS C
     Route: 048
     Dates: start: 20140613, end: 20140821
  10. DURAGESIC [Concomitant]
     Active Substance: FENTANYL
  11. FERROUS SULFATE [Concomitant]
     Active Substance: FERROUS SULFATE\FERROUS SULFATE, DRIED
  12. PREVACID [Concomitant]
     Active Substance: LANSOPRAZOLE
  13. ZOFRAN [Concomitant]
     Active Substance: ONDANSETRON HYDROCHLORIDE
  14. VITAMIN C [Concomitant]
     Active Substance: ASCORBIC ACID
  15. ASPIRIN. [Concomitant]
     Active Substance: ASPIRIN
  16. CYMBALTA [Concomitant]
     Active Substance: DULOXETINE HYDROCHLORIDE
  17. OPANA [Concomitant]
     Active Substance: OXYMORPHONE HYDROCHLORIDE

REACTIONS (2)
  - Gun shot wound [None]
  - Intentional self-injury [None]

NARRATIVE: CASE EVENT DATE: 20140821
